FAERS Safety Report 13017176 (Version 1)
Quarter: 2016Q4

REPORT INFORMATION
  Report Type: Spontaneous
  Country: US (occurrence: US)
  Receive Date: 20161208
  Receipt Date: 20161208
  Transmission Date: 20170207
  Serious: Yes (Death)
  Sender: FDA-Public Use
  Company Number: None

PATIENT
  Age: 76 Year
  Sex: Female

DRUGS (9)
  1. LETAIRIS [Suspect]
     Active Substance: AMBRISENTAN
     Indication: PULMONARY ARTERIAL HYPERTENSION
     Route: 048
     Dates: start: 201406, end: 201611
  2. ONDANSETRON [Concomitant]
     Active Substance: ONDANSETRON
  3. DIGOXIN. [Concomitant]
     Active Substance: DIGOXIN
  4. TYVASO [Concomitant]
     Active Substance: TREPROSTINIL
  5. FLUOXETINE [Concomitant]
     Active Substance: FLUOXETINE HYDROCHLORIDE
  6. ATORVASTATIN [Concomitant]
     Active Substance: ATORVASTATIN
  7. FUROSEMIDE. [Concomitant]
     Active Substance: FUROSEMIDE
  8. DILTIAZEM. [Concomitant]
     Active Substance: DILTIAZEM
  9. AZATHIOPRINE. [Concomitant]
     Active Substance: AZATHIOPRINE

REACTIONS (3)
  - Dyspnoea [None]
  - Lung consolidation [None]
  - Productive cough [None]

NARRATIVE: CASE EVENT DATE: 20161110
